FAERS Safety Report 12210971 (Version 1)
Quarter: 2016Q1

REPORT INFORMATION
  Report Type: Report from Study
  Country: CA (occurrence: CA)
  Receive Date: 20160325
  Receipt Date: 20160325
  Transmission Date: 20160526
  Serious: Yes (Other)
  Sender: FDA-Public Use
  Company Number: CA-AMGEN-CANSL2016036137

PATIENT
  Age: 42 Year
  Sex: Male

DRUGS (2)
  1. CLONAZEPAM. [Concomitant]
     Active Substance: CLONAZEPAM
     Dosage: UNK
  2. ENBREL [Suspect]
     Active Substance: ETANERCEPT
     Indication: RHEUMATOID ARTHRITIS
     Dosage: 50 MG, UNK
     Route: 065
     Dates: start: 20031209, end: 20160309

REACTIONS (9)
  - Weight decreased [Unknown]
  - Arthropathy [Unknown]
  - Glaucoma [Unknown]
  - Iritis [Unknown]
  - Eye disorder [Unknown]
  - Bedridden [Unknown]
  - Photokeratitis [Unknown]
  - Vision blurred [Unknown]
  - Pain [Unknown]

NARRATIVE: CASE EVENT DATE: 201503
